FAERS Safety Report 9551518 (Version 1)
Quarter: 2013Q2

REPORT INFORMATION
  Report Type: Spontaneous
  Country: US (occurrence: None)
  Receive Date: 20130627
  Receipt Date: 20130627
  Transmission Date: 20140414
  Serious: No
  Sender: FDA-Public Use
  Company Number: 1000044203

PATIENT
  Age: 53 Year
  Sex: Female

DRUGS (1)
  1. LINZESS (LINACLOTIDE) (290 MICROGRAM, CAPSULES) [Suspect]
     Indication: IRRITABLE BOWEL SYNDROME
     Dosage: (290 MCG, 1 IN 1 D)
     Route: 048
     Dates: start: 20130409

REACTIONS (1)
  - Diarrhoea [None]
